FAERS Safety Report 7033537-X (Version None)
Quarter: 2010Q4

REPORT INFORMATION
  Report Type: 
  Country: None (occurrence: None)
  Receive Date: 20101007
  Receipt Date: 20100923
  Transmission Date: 20110411
  Serious: Yes (Other)
  Sender: FDA-Public Use
  Company Number: PHFR2010GB04415

PATIENT
  Age: 56 Year
  Sex: Female

DRUGS (12)
  1. FEMARA [Suspect]
     Indication: BREAST CANCER
  2. ADCAL-D3 [Concomitant]
  3. LEVOTHYROXINE SODIUM [Concomitant]
  4. ASPIRIN [Concomitant]
     Dosage: UNK
  5. COLOFAC [Concomitant]
  6. COD-LIVER OIL [Concomitant]
  7. GLUCOSAMINE [Concomitant]
     Dosage: UNK
  8. CHONDROITIN A [Concomitant]
  9. EVENING PRIMROSE OIL [Concomitant]
  10. CALCIUM [Concomitant]
  11. VITAMIN D3 [Concomitant]
     Dosage: UNK
  12. VITAMIN B [Concomitant]

REACTIONS (12)
  - AMNESIA [None]
  - ANXIETY [None]
  - APATHY [None]
  - ARTHRALGIA [None]
  - BALANCE DISORDER [None]
  - BODY TEMPERATURE INCREASED [None]
  - DYSGEUSIA [None]
  - FATIGUE [None]
  - PARANOIA [None]
  - SLEEP DISORDER [None]
  - THIRST [None]
  - TINNITUS [None]
